FAERS Safety Report 21698234 (Version 2)
Quarter: 2022Q4

REPORT INFORMATION
  Report Type: Spontaneous
  Country: CN (occurrence: CN)
  Receive Date: 20221208
  Receipt Date: 20221216
  Transmission Date: 20230113
  Serious: Yes (Other)
  Sender: FDA-Public Use
  Company Number: CN-002147023-NVSC2022CN283877

PATIENT
  Age: 51 Year
  Sex: Female

DRUGS (2)
  1. CERITINIB [Suspect]
     Active Substance: CERITINIB
     Indication: Carcinoid tumour pulmonary
     Dosage: 450 MG, QD (WITH FOOD)
     Route: 048
     Dates: start: 202003, end: 202004
  2. CERITINIB [Suspect]
     Active Substance: CERITINIB
     Dosage: 300 MG, QD (WITH FOOD)
     Route: 048
     Dates: start: 202004, end: 202007

REACTIONS (8)
  - Carcinoid tumour pulmonary [Unknown]
  - Malignant neoplasm progression [Unknown]
  - Neurological symptom [Unknown]
  - Nausea [Unknown]
  - Vomiting [Unknown]
  - Drug intolerance [Unknown]
  - Decreased appetite [Unknown]
  - Product use in unapproved indication [Unknown]
